FAERS Safety Report 9543212 (Version 1)
Quarter: 2013Q3

REPORT INFORMATION
  Report Type: Spontaneous
  Country: US (occurrence: US)
  Receive Date: 20130923
  Receipt Date: 20130923
  Transmission Date: 20140515
  Serious: Yes (Other)
  Sender: FDA-Public Use
  Company Number: US-NAPPMUNDI-USA-2012-0096858

PATIENT
  Age: 25 Year
  Sex: Female

DRUGS (4)
  1. DILAUDID TABLET [Suspect]
     Indication: DRUG ABUSE
     Route: 048
  2. ROXICODONE [Suspect]
     Indication: DRUG ABUSE
     Route: 065
  3. HEROIN [Suspect]
     Indication: SUBSTANCE ABUSE
     Route: 065
  4. COCAINE [Suspect]
     Indication: SUBSTANCE ABUSE
     Route: 065

REACTIONS (1)
  - Substance abuse [Unknown]
